FAERS Safety Report 9457481 (Version 1)
Quarter: 2013Q3

REPORT INFORMATION
  Report Type: Spontaneous
  Country: SE (occurrence: SE)
  Receive Date: 20130814
  Receipt Date: 20130814
  Transmission Date: 20140515
  Serious: Yes (Other)
  Sender: FDA-Public Use
  Company Number: SE-RANBAXY-2013US-72140

PATIENT
  Sex: Female

DRUGS (6)
  1. ENALAPRIL [Suspect]
     Indication: HYPERTENSION
     Dosage: 5 MG/ DAY
     Route: 065
  2. ENALAPRIL [Suspect]
     Indication: HYPERTENSION
     Dosage: 10 MG/DAY
     Route: 065
  3. LABETALOL [Concomitant]
     Indication: HYPERTENSION
     Dosage: 400 MG, BID
     Route: 065
  4. AMILORIDE [Concomitant]
     Indication: HYPERTENSION
     Dosage: 5 MG/ DAY
     Route: 065
  5. HYDROCHLOROTHIAZIDE [Concomitant]
     Indication: HYPERTENSION
     Dosage: 50 MG/DAY
     Route: 065
  6. PRAZOSIN [Concomitant]
     Indication: HYPERTENSION
     Dosage: 2 MG, BID
     Route: 065

REACTIONS (3)
  - Exposure during pregnancy [Recovered/Resolved]
  - Oligohydramnios [Unknown]
  - Foetal monitoring abnormal [Unknown]
